FAERS Safety Report 8456046-X (Version None)
Quarter: 2012Q2

REPORT INFORMATION
  Report Type: 
  Country: None (occurrence: None)
  Receive Date: 20120621
  Receipt Date: 20120609
  Transmission Date: 20120825
  Serious: Yes (Other)
  Sender: FDA-Public Use
  Company Number: PHHY2012FR052505

PATIENT
  Age: 35 Year
  Sex: Female

DRUGS (1)
  1. PARLODEL [Suspect]
     Indication: LACTATION INHIBITION THERAPY
     Route: 048
     Dates: start: 20120601

REACTIONS (1)
  - THROMBOPHLEBITIS SUPERFICIAL [None]
